FAERS Safety Report 23444884 (Version 3)
Quarter: 2024Q4

REPORT INFORMATION
  Report Type: Report from Study
  Country: JP (occurrence: JP)
  Receive Date: 20240125
  Receipt Date: 20241017
  Transmission Date: 20250115
  Serious: Yes (Other)
  Sender: EISAI
  Company Number: JP-Eisai-202303259_LEN-EC_P_1

PATIENT
  Age: 66 Year
  Sex: Female
  Weight: 53 kg

DRUGS (9)
  1. LENVIMA [Suspect]
     Active Substance: LENVATINIB
     Indication: Endometrial cancer recurrent
     Route: 048
     Dates: start: 20230508, end: 20230524
  2. LENVIMA [Suspect]
     Active Substance: LENVATINIB
     Route: 048
     Dates: start: 20230814, end: 20240130
  3. KEYTRUDA [Suspect]
     Active Substance: PEMBROLIZUMAB
     Indication: Endometrial cancer recurrent
     Route: 042
     Dates: start: 20230508, end: 20230508
  4. KEYTRUDA [Suspect]
     Active Substance: PEMBROLIZUMAB
     Route: 042
     Dates: start: 20230823, end: 20230823
  5. KEYTRUDA [Suspect]
     Active Substance: PEMBROLIZUMAB
     Route: 042
     Dates: start: 20230913, end: 20230913
  6. KEYTRUDA [Suspect]
     Active Substance: PEMBROLIZUMAB
     Route: 042
     Dates: start: 20231004, end: 20231004
  7. KEYTRUDA [Suspect]
     Active Substance: PEMBROLIZUMAB
     Route: 042
     Dates: start: 20231025, end: 20231025
  8. KEYTRUDA [Suspect]
     Active Substance: PEMBROLIZUMAB
     Route: 042
     Dates: start: 20231206, end: 20231206
  9. KEYTRUDA [Suspect]
     Active Substance: PEMBROLIZUMAB
     Route: 042
     Dates: start: 20240110, end: 20240110

REACTIONS (1)
  - Hypertension [Recovering/Resolving]

NARRATIVE: CASE EVENT DATE: 20230525
